FAERS Safety Report 8446761 (Version 2)
Quarter: 2012Q4

REPORT INFORMATION
  Report Type: 
  Country: US (occurrence: US)
  Receive Date: 20120308
  Receipt Date: 20121221
  Transmission Date: 20130627
  Serious: Yes (Other)
  Sender: FDA-Public Use
  Company Number: US-US-EMD SERONO, INC.-7116396

PATIENT
  Sex: Female
  Weight: 61 kg

DRUGS (3)
  1. REBIF [Suspect]
     Indication: MULTIPLE SCLEROSIS
     Route: 058
     Dates: start: 20060608, end: 201112
  2. REBIF [Suspect]
     Route: 058
     Dates: start: 20120229
  3. UNSPECIFIED MEDICATIONS [Concomitant]
     Indication: PRODUCT USED FOR UNKNOWN INDICATION

REACTIONS (10)
  - Muscle atrophy [Recovered/Resolved]
  - Weight decreased [Unknown]
  - Liver disorder [Unknown]
  - Pancreatic disorder [Unknown]
  - Bladder disorder [Unknown]
  - Oedema peripheral [Unknown]
  - Decreased appetite [Unknown]
  - Fatigue [Unknown]
  - Anaemia [Recovered/Resolved]
  - Depression [Recovered/Resolved]
